FAERS Safety Report 25144381 (Version 2)
Quarter: 2025Q3

REPORT INFORMATION
  Report Type: Report from Study
  Country: US (occurrence: US)
  Receive Date: 20250401
  Receipt Date: 20250717
  Transmission Date: 20251021
  Serious: Yes (Other)
  Sender: ABBVIE
  Company Number: US-ABBVIE-6197195

PATIENT
  Age: 60 Year
  Sex: Female

DRUGS (2)
  1. RINVOQ [Suspect]
     Active Substance: UPADACITINIB
     Indication: Rheumatoid arthritis
     Route: 048
     Dates: start: 20190906, end: 202504
  2. RINVOQ [Suspect]
     Active Substance: UPADACITINIB
     Indication: Rheumatoid arthritis
     Route: 048
     Dates: start: 20250711

REACTIONS (9)
  - Bladder cancer [Unknown]
  - Spinal fracture [Unknown]
  - Myocardial infarction [Unknown]
  - Pneumonia [Unknown]
  - Pulmonary mass [Unknown]
  - Renal mass [Unknown]
  - Cholecystectomy [Unknown]
  - Hysterectomy [Unknown]
  - Surgery [Unknown]

NARRATIVE: CASE EVENT DATE: 20200101
